FAERS Safety Report 9517633 (Version 1)
Quarter: 2013Q3

REPORT INFORMATION
  Report Type: Report from Study
  Country: CH (occurrence: CH)
  Receive Date: 20130912
  Receipt Date: 20130912
  Transmission Date: 20140515
  Serious: Yes (Death, Other)
  Sender: FDA-Public Use
  Company Number: CH-ROCHE-1270392

PATIENT
  Sex: 0

DRUGS (14)
  1. BEVACIZUMAB [Suspect]
     Indication: ACUTE MYELOID LEUKAEMIA
     Dosage: DOSE: 5-10 MG/KG
     Route: 065
  2. BEVACIZUMAB [Suspect]
     Indication: MYELODYSPLASTIC SYNDROME
  3. IDARUBICIN [Suspect]
     Indication: ACUTE MYELOID LEUKAEMIA
     Route: 065
  4. IDARUBICIN [Suspect]
     Indication: MYELODYSPLASTIC SYNDROME
  5. DAUNORUBICIN [Suspect]
     Indication: ACUTE MYELOID LEUKAEMIA
     Route: 065
  6. DAUNORUBICIN [Suspect]
     Indication: MYELODYSPLASTIC SYNDROME
  7. CYTARABINE [Suspect]
     Indication: ACUTE MYELOID LEUKAEMIA
     Route: 065
  8. CYTARABINE [Suspect]
     Indication: MYELODYSPLASTIC SYNDROME
  9. ETOPOSIDE PHOSPHATE [Suspect]
     Indication: ACUTE MYELOID LEUKAEMIA
     Route: 065
  10. ETOPOSIDE PHOSPHATE [Suspect]
     Indication: MYELODYSPLASTIC SYNDROME
  11. MITOXANTRON [Suspect]
     Indication: ACUTE MYELOID LEUKAEMIA
     Route: 065
  12. MITOXANTRON [Suspect]
     Indication: MYELODYSPLASTIC SYNDROME
  13. OMEGA-3 POLYUNSATURATED FATTY ACIDS [Suspect]
     Indication: ACUTE MYELOID LEUKAEMIA
     Route: 065
  14. OMEGA-3 POLYUNSATURATED FATTY ACIDS [Suspect]
     Indication: MYELODYSPLASTIC SYNDROME

REACTIONS (6)
  - Colitis [Fatal]
  - Infection [Unknown]
  - Neoplasm [Unknown]
  - Cardiovascular disorder [Unknown]
  - Respiratory disorder [Unknown]
  - Dyspepsia [Unknown]
